FAERS Safety Report 11814050 (Version 1)
Quarter: 2015Q4

REPORT INFORMATION
  Report Type: Spontaneous
  Country: US (occurrence: None)
  Receive Date: 20151208
  Receipt Date: 20151208
  Transmission Date: 20160305
  Serious: Yes (Hospitalization)
  Sender: FDA-Public Use
  Company Number: None

PATIENT
  Age: 61 Year
  Sex: Female
  Weight: 92.6 kg

DRUGS (16)
  1. HUMALOG [Concomitant]
     Active Substance: INSULIN LISPRO
  2. ASA [Concomitant]
     Active Substance: ASPIRIN
  3. AMIODARONE [Concomitant]
     Active Substance: AMIODARONE
  4. AMITRIPTYLINE [Concomitant]
     Active Substance: AMITRIPTYLINE
  5. SIMVASTATIN. [Concomitant]
     Active Substance: SIMVASTATIN
  6. GABAPENTIN. [Concomitant]
     Active Substance: GABAPENTIN
  7. TRAMADOL. [Suspect]
     Active Substance: TRAMADOL
     Indication: PAIN
     Dosage: PRN
     Route: 048
  8. XANAX [Suspect]
     Active Substance: ALPRAZOLAM
     Indication: ANXIETY
     Dosage: PRN
     Route: 048
  9. SMOG ENEMA [Concomitant]
  10. LOPRESSOR [Concomitant]
     Active Substance: METOPROLOL TARTRATE
  11. PROTONIX [Concomitant]
     Active Substance: PANTOPRAZOLE SODIUM
  12. MAG OX [Concomitant]
     Active Substance: MAGNESIUM OXIDE
  13. K-CON [Concomitant]
  14. APAP [Concomitant]
     Active Substance: ACETAMINOPHEN
  15. METFORMIN [Concomitant]
     Active Substance: METFORMIN HYDROCHLORIDE
  16. FUROSEMIDE. [Concomitant]
     Active Substance: FUROSEMIDE

REACTIONS (1)
  - Sedation [None]

NARRATIVE: CASE EVENT DATE: 20150322
